FAERS Safety Report 14906375 (Version 2)
Quarter: 2019Q4

REPORT INFORMATION
  Report Type: Report from Study
  Country: US (occurrence: US)
  Receive Date: 20180517
  Receipt Date: 20191107
  Transmission Date: 20200122
  Serious: Yes (Other)
  Sender: FDA-Public Use
  Company Number: US-SA-2018SA108753

PATIENT
  Sex: Male

DRUGS (5)
  1. FARXIGA [Concomitant]
     Active Substance: DAPAGLIFLOZIN PROPANEDIOL
     Dosage: UNK UNK,UNK
     Route: 065
  2. INSULIN GLARGINE [Suspect]
     Active Substance: INSULIN GLARGINE
     Dosage: 145 DF, HS
     Route: 058
  3. INSULIN GLARGINE [Suspect]
     Active Substance: INSULIN GLARGINE
     Dosage: 35 UNITS IN THE MORNING, 35 UNITS AT NIGHT, BID
     Route: 058
  4. HUMALOG [Concomitant]
     Active Substance: INSULIN LISPRO
     Dosage: UNK UNK,UNK
     Route: 065
  5. INSULIN GLARGINE [Suspect]
     Active Substance: INSULIN GLARGINE
     Indication: DIABETES MELLITUS
     Dosage: 140 DF, HS
     Route: 058
     Dates: start: 201704

REACTIONS (10)
  - Cough [Unknown]
  - Throat clearing [Unknown]
  - Disability [Unknown]
  - Foot operation [Unknown]
  - Injection site bruising [Recovered/Resolved]
  - Inability to afford medication [Unknown]
  - Upper respiratory tract congestion [Unknown]
  - Limb operation [Unknown]
  - Inappropriate schedule of product administration [Unknown]
  - Neuropathy peripheral [Unknown]

NARRATIVE: CASE EVENT DATE: 2018
